FAERS Safety Report 7513538-5 (Version None)
Quarter: 2011Q2

REPORT INFORMATION
  Report Type: 
  Country: None (occurrence: None)
  Receive Date: 20110531
  Receipt Date: 20110517
  Transmission Date: 20111010
  Serious: Yes (Hospitalization, Other)
  Sender: FDA-Public Use
  Company Number: US-BAYER-2011-026268

PATIENT
  Age: 29 Year
  Sex: Female
  Weight: 86 kg

DRUGS (5)
  1. ADVIL LIQUI-GELS [Concomitant]
  2. PHENERGAN HCL [Concomitant]
  3. FEMCON FE [Concomitant]
     Dosage: UNK UNK, CONT
  4. VICODIN [Concomitant]
  5. YAZ [Suspect]
     Indication: ORAL CONTRACEPTION
     Dosage: UNK
     Dates: start: 20080601, end: 20081201

REACTIONS (2)
  - PELVIC VENOUS THROMBOSIS [None]
  - EMOTIONAL DISTRESS [None]
